FAERS Safety Report 4696892-1 (Version None)
Quarter: 2005Q2

REPORT INFORMATION
  Report Type: 
  Country: None (occurrence: None)
  Receive Date: 20050620
  Receipt Date: 20050614
  Transmission Date: 20051028
  Serious: Yes (Other)
  Sender: FDA-Public Use
  Company Number: 2005-06-0128

PATIENT
  Age: 60 Year
  Sex: Female

DRUGS (4)
  1. CLARAMAX (DESLORATADINE) ^CLARAMAX^ TABLETS [Suspect]
     Indication: SEASONAL ALLERGY
     Dosage: 1 QD ORAL
     Route: 048
     Dates: start: 20050527, end: 20050528
  2. INSULIN  INJECTABLE [Suspect]
     Indication: DIABETES MELLITUS
     Dosage: SUBCUTANEOUS
     Route: 058
  3. CELEBREX [Concomitant]
  4. ZANTAC [Concomitant]

REACTIONS (3)
  - DEHYDRATION [None]
  - DYSARTHRIA [None]
  - HYPOGLYCAEMIA [None]
